FAERS Safety Report 7715324-X (Version None)
Quarter: 2011Q3

REPORT INFORMATION
  Report Type: 
  Country: None (occurrence: None)
  Receive Date: 20110829
  Receipt Date: 20110824
  Transmission Date: 20111222
  Serious: Yes (Other)
  Sender: FDA-Public Use
  Company Number: US-PFIZER INC-2011196814

PATIENT
  Sex: Female
  Weight: 80.726 kg

DRUGS (1)
  1. NEURONTIN [Suspect]
     Indication: NERVE INJURY
     Dosage: 800 MG, 2X/DAY
     Route: 048
     Dates: start: 20000101

REACTIONS (2)
  - LIGAMENT INJURY [None]
  - GUN SHOT WOUND [None]
